FAERS Safety Report 24147303 (Version 2)
Quarter: 2024Q3

REPORT INFORMATION
  Report Type: Spontaneous
  Country: PT (occurrence: PT)
  Receive Date: 20240729
  Receipt Date: 20240816
  Transmission Date: 20241017
  Serious: Yes (Other)
  Sender: MYLAN
  Company Number: PT-MYLANLABS-2024M1069349

PATIENT
  Age: 46 Year
  Sex: Female

DRUGS (4)
  1. BORTEZOMIB [Suspect]
     Active Substance: BORTEZOMIB
     Indication: Plasma cell myeloma
     Dosage: UNK, TOTAL, VCD PROTOCOL (BORTEZOMIB, CYCLOPHOSPHAMIDE AND DEXAMETHASONE)
     Route: 065
     Dates: start: 2017
  2. LENALIDOMIDE [Suspect]
     Active Substance: LENALIDOMIDE
     Indication: Plasma cell myeloma
     Dosage: UNK
     Route: 065
  3. LENALIDOMIDE [Suspect]
     Active Substance: LENALIDOMIDE
     Dosage: UNK
     Route: 065
  4. POMALIDOMIDE [Suspect]
     Active Substance: POMALIDOMIDE
     Indication: Plasma cell myeloma
     Dosage: UNK, THE DPD COMBINATION (DARATUMUMAB, POMALIDOMIDE AND DEXAMETHASONE), WHICH WAS STARTED IN NOVEMBE
     Route: 065
     Dates: start: 201911

REACTIONS (1)
  - Therapy non-responder [Unknown]
